FAERS Safety Report 8791181 (Version 1)
Quarter: 2012Q4

REPORT INFORMATION
  Report Type: Spontaneous
  Country: US (occurrence: None)
  Receive Date: 20120911
  Receipt Date: 20120911
  Transmission Date: 20130627
  Serious: Yes (Other)
  Sender: FDA-Public Use
  Company Number: AUR-APL-2012-03767

PATIENT
  Age: 52 Year
  Sex: Male

DRUGS (2)
  1. LISINOPRIL [Suspect]
     Indication: HYPERTENSION
     Dosage: 10 mg (10 mg, 1 in 1 D), Oral
     Route: 048
     Dates: start: 20120731, end: 20120801
  2. AMLODIPINE (AMLODIPINE) [Concomitant]

REACTIONS (1)
  - Hallucination [None]
